FAERS Safety Report 10608350 (Version 2)
Quarter: 2014Q4

REPORT INFORMATION
  Report Type: Spontaneous
  Country: US (occurrence: US)
  Receive Date: 20141125
  Receipt Date: 20141125
  Transmission Date: 20150529
  Serious: Yes (Hospitalization, Other)
  Sender: FDA-Public Use
  Company Number: US-US-EMD SERONO, INC.-440014M09USA

PATIENT
  Age: 59 Year
  Sex: Male
  Weight: 78 kg

DRUGS (1)
  1. SEROSTIM [Suspect]
     Active Substance: SOMATROPIN
     Indication: HIV WASTING SYNDROME
     Dates: start: 200906, end: 200906

REACTIONS (4)
  - Diabetic ketoacidosis [Recovered/Resolved]
  - Staphylococcal infection [Recovered/Resolved]
  - Lipodystrophy acquired [Unknown]
  - Joint abscess [Recovered/Resolved]

NARRATIVE: CASE EVENT DATE: 2009
